FAERS Safety Report 7223947-X (Version None)
Quarter: 2011Q1

REPORT INFORMATION
  Report Type: 
  Country: None (occurrence: None)
  Receive Date: 20110113
  Receipt Date: 20110104
  Transmission Date: 20110831
  Serious: No
  Sender: FDA-Public Use
  Company Number: US-BIOGENIDEC-2010BI045057

PATIENT
  Sex: Female

DRUGS (2)
  1. TYSABRI [Suspect]
     Indication: MULTIPLE SCLEROSIS
     Route: 042
     Dates: start: 20090206
  2. INHALER [Concomitant]
     Indication: ASTHMA

REACTIONS (19)
  - WHEEZING [None]
  - DYSPNOEA [None]
  - PARAESTHESIA [None]
  - SNEEZING [None]
  - INFLAMMATION [None]
  - MUSCULAR WEAKNESS [None]
  - BURNING SENSATION [None]
  - ERYTHEMA [None]
  - ASTHENIA [None]
  - OROPHARYNGEAL PAIN [None]
  - GAIT DISTURBANCE [None]
  - OEDEMA PERIPHERAL [None]
  - INSOMNIA [None]
  - GENERAL SYMPTOM [None]
  - UPPER-AIRWAY COUGH SYNDROME [None]
  - PAIN [None]
  - DRUG EFFECT DECREASED [None]
  - FATIGUE [None]
  - NASOPHARYNGITIS [None]
